FAERS Safety Report 7680834-0 (Version None)
Quarter: 2011Q3

REPORT INFORMATION
  Report Type: 
  Country: None (occurrence: None)
  Receive Date: 20110812
  Receipt Date: 20110803
  Transmission Date: 20111222
  Serious: Yes (Hospitalization)
  Sender: FDA-Public Use
  Company Number: US-MERCK-1107USA01978

PATIENT
  Age: 52 Year
  Sex: Female

DRUGS (15)
  1. AMBIEN [Concomitant]
     Route: 065
  2. CORTICOSTEROIDS (UNSPECIFIED) [Concomitant]
     Indication: DERMATOMYOSITIS
     Route: 065
  3. PREDNISONE [Concomitant]
     Route: 065
  4. AZATHIOPRINE [Concomitant]
     Route: 065
  5. VITAMINS (UNSPECIFIED) [Concomitant]
     Route: 065
  6. ACETAMINOPHEN [Concomitant]
     Route: 065
  7. ASCORBIC ACID [Concomitant]
     Route: 065
  8. ENOXAPARIN SODIUM [Concomitant]
     Route: 065
  9. METOCLOPRAMIDE [Concomitant]
     Route: 065
  10. FOSAMAX [Suspect]
     Indication: BONE LOSS
     Route: 048
     Dates: start: 20110101
  11. LANTUS [Concomitant]
     Route: 065
  12. TRAMADOL HYDROCHLORIDE [Concomitant]
     Route: 065
  13. PANTOPRAZOLE [Concomitant]
     Route: 065
  14. FUROSEMIDE [Concomitant]
     Route: 065
  15. CHOLECALCIFEROL [Concomitant]
     Route: 065

REACTIONS (2)
  - MUSCLE INJURY [None]
  - BLOOD CREATINE PHOSPHOKINASE INCREASED [None]
